FAERS Safety Report 4504726-0 (Version None)
Quarter: 2004Q3

REPORT INFORMATION
  Report Type: 
  Country: None (occurrence: None)
  Receive Date: 20040927
  Receipt Date: 20040712
  Transmission Date: 20050211
  Serious: No
  Sender: FDA-Public Use
  Company Number: USA040772393

PATIENT
  Age: 34 Year
  Sex: Female
  Weight: 55 kg

DRUGS (2)
  1. STRATTERA [Suspect]
     Indication: ATTENTION DEFICIT/HYPERACTIVITY DISORDER
     Dosage: 40 MG DAY
     Dates: start: 20030701
  2. ORTHO TRI-CYCLEN [Concomitant]

REACTIONS (5)
  - CHILLS [None]
  - NAUSEA [None]
  - PAIN [None]
  - SENSATION OF HEAVINESS [None]
  - SOMNOLENCE [None]
